FAERS Safety Report 19252263 (Version 1)
Quarter: 2021Q2

REPORT INFORMATION
  Report Type: Spontaneous
  Country: US (occurrence: US)
  Receive Date: 20210513
  Receipt Date: 20210513
  Transmission Date: 20210717
  Serious: Yes (Life-Threatening)
  Sender: FDA-Public Use
  Company Number: None

PATIENT
  Age: 67 Year
  Sex: Female
  Weight: 72.45 kg

DRUGS (10)
  1. ALENDRONATE SODIUM TABLETS, USP 70MG [Suspect]
     Active Substance: ALENDRONATE SODIUM
     Indication: OSTEOPENIA
     Dosage: ?          QUANTITY:1 TABLET(S);OTHER FREQUENCY:ONCE WEEKLY;?
     Dates: start: 20210228, end: 20210425
  2. KLOR?CON 10 MEQ [Concomitant]
  3. AZATHIOPRINE. [Concomitant]
     Active Substance: AZATHIOPRINE
  4. PROBIOTIC MULTI?ENZYME [Concomitant]
  5. ASPIRIN 81MG [Concomitant]
     Active Substance: ASPIRIN
  6. TRIAMTERENE. [Concomitant]
     Active Substance: TRIAMTERENE
  7. VITAMIN D2 [Concomitant]
     Active Substance: ERGOCALCIFEROL
  8. CITRACAL CALCIUM SUPPLEMENT PLUS D3 [Concomitant]
  9. TOUJEO [Concomitant]
     Active Substance: INSULIN GLARGINE
  10. HUMALOG KWIKPEN [Concomitant]
     Active Substance: INSULIN LISPRO

REACTIONS (4)
  - Sluggishness [None]
  - Palpitations [None]
  - Chest discomfort [None]
  - Blood potassium decreased [None]

NARRATIVE: CASE EVENT DATE: 20210418
